FAERS Safety Report 4753441-7 (Version None)
Quarter: 2005Q3

REPORT INFORMATION
  Report Type: 
  Country: None (occurrence: None)
  Receive Date: 20050826
  Receipt Date: 20050815
  Transmission Date: 20060218
  Serious: Yes (Life-Threatening, Disabling, Congenital Anomaly)
  Sender: FDA-Public Use
  Company Number: US-ROCHE-414604

PATIENT
  Sex: Male

DRUGS (1)
  1. ACCUTANE [Suspect]
     Dates: start: 19830615, end: 19830615

REACTIONS (5)
  - AMNESIA [None]
  - BRAIN DAMAGE [None]
  - CONGENITAL ANOMALY [None]
  - DRUG EXPOSURE DURING PREGNANCY [None]
  - NEONATAL RESPIRATORY FAILURE [None]
